FAERS Safety Report 4776559-1 (Version None)
Quarter: 2005Q3

REPORT INFORMATION
  Report Type: 
  Country: None (occurrence: None)
  Receive Date: 20050915
  Receipt Date: 20050905
  Transmission Date: 20060218
  Serious: Yes (Death)
  Sender: FDA-Public Use
  Company Number: 2005094647

PATIENT
  Sex: Male

DRUGS (2)
  1. BEXTRA [Suspect]
     Indication: BACK PAIN
     Dosage: 40 MG (40 MG, 1 IN 1 D), ORAL
     Route: 048
     Dates: start: 20050201, end: 20050601
  2. ANTINEOPLASTIC AGENTS (ANTINEOPLASTIC AGENTS) [Concomitant]

REACTIONS (1)
  - METASTASIS [None]
